FAERS Safety Report 5232571-X (Version None)
Quarter: 2007Q1

REPORT INFORMATION
  Report Type: 
  Country: None (occurrence: None)
  Receive Date: 20070207
  Receipt Date: 20070129
  Transmission Date: 20070707
  Serious: Yes (Other)
  Sender: FDA-Public Use
  Company Number: US-AVENTIS-200614025US

PATIENT
  Sex: Male
  Weight: 79.54 kg

DRUGS (8)
  1. LANTUS [Suspect]
     Route: 058
     Dates: start: 20060101
  2. LANTUS [Suspect]
     Route: 058
     Dates: start: 20060501
  3. OPTICLIK (INSULIN INJECTION PEN) [Suspect]
     Dates: start: 20060101
  4. ACTOS [Concomitant]
     Dosage: DOSE: UNK
  5. ALBUTEROL [Concomitant]
     Dosage: DOSE: UNK
  6. TOPROL-XL [Concomitant]
     Dosage: DOSE: UNK
  7. FUROSEMIDE [Concomitant]
     Dosage: DOSE: UNK
  8. ALTACE [Concomitant]
     Dosage: DOSE: UNK

REACTIONS (10)
  - BLOOD GLUCOSE INCREASED [None]
  - BRAIN NATRIURETIC PEPTIDE INCREASED [None]
  - CARDIAC FAILURE CONGESTIVE [None]
  - EJECTION FRACTION DECREASED [None]
  - GLYCOSYLATED HAEMOGLOBIN INCREASED [None]
  - PULMONARY HYPERTENSION [None]
  - TROPONIN INCREASED [None]
  - VENTRICULAR HYPERTROPHY [None]
  - VENTRICULAR HYPOKINESIA [None]
  - WHITE BLOOD CELL COUNT DECREASED [None]
